FAERS Safety Report 15340140 (Version 1)
Quarter: 2018Q3

REPORT INFORMATION
  Report Type: Spontaneous
  Country: IL (occurrence: IL)
  Receive Date: 20180831
  Receipt Date: 20180831
  Transmission Date: 20181010
  Serious: Yes (Death)
  Sender: FDA-Public Use
  Company Number: IL-PFIZER INC-2018349284

PATIENT
  Age: 67 Year
  Sex: Female

DRUGS (1)
  1. INOTUZUMAB OZOGAMICIN [Suspect]
     Active Substance: INOTUZUMAB OZOGAMICIN
     Dosage: UNK

REACTIONS (7)
  - Acute hepatic failure [Fatal]
  - Toxicity to various agents [Fatal]
  - Hepatorenal syndrome [Fatal]
  - Coagulopathy [Fatal]
  - Acute kidney injury [Fatal]
  - Ascites [Fatal]
  - Encephalopathy [Fatal]
